FAERS Safety Report 13983156 (Version 3)
Quarter: 2018Q1

REPORT INFORMATION
  Report Type: Spontaneous
  Country: CO (occurrence: CO)
  Receive Date: 20170918
  Receipt Date: 20180314
  Transmission Date: 20180508
  Serious: Yes (Death, Hospitalization, Other)
  Sender: FDA-Public Use
  Company Number: CO-JNJFOC-20170913870

PATIENT
  Age: 72 Year
  Sex: Male

DRUGS (5)
  1. ENALAPRIL [Concomitant]
     Active Substance: ENALAPRIL
     Route: 065
  2. CARVEDILOL. [Concomitant]
     Active Substance: CARVEDILOL
     Route: 065
  3. XARELTO [Suspect]
     Active Substance: RIVAROXABAN
     Indication: ATRIAL FIBRILLATION
     Dosage: DOSAGE: UNKNOWN
     Route: 048
     Dates: start: 2015
  4. ATORVASTATIN [Concomitant]
     Active Substance: ATORVASTATIN
     Route: 065
  5. ACETYLSALICYLIC ACID [Suspect]
     Active Substance: ASPIRIN
     Indication: PRODUCT USED FOR UNKNOWN INDICATION
     Route: 065
     Dates: start: 20170831

REACTIONS (17)
  - Brain oedema [Unknown]
  - Pyrexia [Unknown]
  - Mucosal dryness [Unknown]
  - Atrial fibrillation [Unknown]
  - Hyperglycaemia [Unknown]
  - Increased upper airway secretion [Unknown]
  - Cardiomegaly [Unknown]
  - Blood urine present [Unknown]
  - Cardio-respiratory arrest [Fatal]
  - Cerebrovascular disorder [Unknown]
  - Oedema peripheral [Unknown]
  - Pneumonia aspiration [Unknown]
  - Cerebral ischaemia [Unknown]
  - Cerebral ischaemia [Unknown]
  - Haemorrhagic transformation stroke [Unknown]
  - Pain [Unknown]
  - Respiratory distress [Unknown]

NARRATIVE: CASE EVENT DATE: 20170406
